FAERS Safety Report 8560982-3 (Version None)
Quarter: 2012Q3

REPORT INFORMATION
  Report Type: 
  Country: None (occurrence: None)
  Receive Date: 20120802
  Receipt Date: 20120726
  Transmission Date: 20120928
  Serious: Yes (Hospitalization)
  Sender: FDA-Public Use
  Company Number: TW-ELI_LILLY_AND_COMPANY-TW201207008451

PATIENT
  Age: 80 Year
  Sex: Male

DRUGS (6)
  1. FORTEO [Suspect]
     Dosage: UNK
     Dates: start: 20120721
  2. SENNOSIDE [Concomitant]
  3. LEVODOPA [Concomitant]
  4. LIPITOR [Concomitant]
  5. PLAVIX [Concomitant]
  6. DIOVAN [Concomitant]

REACTIONS (2)
  - MUSCULAR WEAKNESS [None]
  - ALTERED STATE OF CONSCIOUSNESS [None]
